FAERS Safety Report 11552789 (Version 1)
Quarter: 2015Q3

REPORT INFORMATION
  Report Type: Report from Study
  Country: US (occurrence: US)
  Receive Date: 20150925
  Receipt Date: 20150925
  Transmission Date: 20151125
  Serious: Yes (Hospitalization)
  Sender: FDA-Public Use
  Company Number: US-BIOGENIDEC-2015BI129372

PATIENT
  Age: 76 Year
  Sex: Female

DRUGS (22)
  1. CALCIUM [Concomitant]
     Active Substance: CALCIUM
  2. MIACALCIN [Concomitant]
     Active Substance: CALCITONIN SALMON
  3. PRAVASTATIN [Concomitant]
     Active Substance: PRAVASTATIN\PRAVASTATIN SODIUM
  4. METOPROLOL [Concomitant]
     Active Substance: METOPROLOL
  5. ALDACTONE [Concomitant]
     Active Substance: SPIRONOLACTONE
  6. ZINC [Concomitant]
     Active Substance: ZINC\ZINC CHLORIDE
  7. SPIRIVA [Concomitant]
     Active Substance: TIOTROPIUM BROMIDE MONOHYDRATE
  8. CALCITRATE [Concomitant]
     Active Substance: CALCIUM CITRATE
  9. ENABLEX [Concomitant]
     Active Substance: DARIFENACIN\DARIFENACIN HYDROBROMIDE
  10. NEXIUM [Concomitant]
     Active Substance: ESOMEPRAZOLE MAGNESIUM
  11. PRIMIDONE. [Concomitant]
     Active Substance: PRIMIDONE
  12. ULTRAM [Concomitant]
     Active Substance: TRAMADOL HYDROCHLORIDE
  13. CENTRUM [Concomitant]
     Active Substance: VITAMINS
  14. NASONEX [Concomitant]
     Active Substance: MOMETASONE FUROATE
  15. ASPIRIN. [Concomitant]
     Active Substance: ASPIRIN
  16. VITAMIN D [Concomitant]
     Active Substance: CHOLECALCIFEROL
  17. BACLOFEN. [Concomitant]
     Active Substance: BACLOFEN
  18. TECFIDERA [Suspect]
     Active Substance: DIMETHYL FUMARATE
     Indication: MULTIPLE SCLEROSIS
     Route: 048
  19. RESTASIS [Concomitant]
     Active Substance: CYCLOSPORINE
  20. ADVAIR HFA [Concomitant]
     Active Substance: FLUTICASONE PROPIONATE\SALMETEROL XINAFOATE
  21. KLONOPIN [Concomitant]
     Active Substance: CLONAZEPAM
  22. LAMICTAL [Concomitant]
     Active Substance: LAMOTRIGINE

REACTIONS (6)
  - Staphylococcal infection [Unknown]
  - Rash [Unknown]
  - Pruritus [Unknown]
  - Flushing [Unknown]
  - Deep brain stimulation [Unknown]
  - Surgery [Unknown]

NARRATIVE: CASE EVENT DATE: 2014
